FAERS Safety Report 5401147-3 (Version None)
Quarter: 2007Q3

REPORT INFORMATION
  Report Type: 
  Country: None (occurrence: None)
  Receive Date: 20070726
  Receipt Date: 20070720
  Transmission Date: 20080115
  Serious: Yes (Death, Hospitalization, Disabling)
  Sender: FDA-Public Use
  Company Number: DILUS-07-0640

PATIENT
  Age: 66 Year
  Sex: Male

DRUGS (8)
  1. DIPRIVAN [Suspect]
     Indication: SEDATION
     Dosage: (30 UG/KG, PER MIN), INTRAVENOUS
  2. SIMVASTATIN [Suspect]
     Indication: DRUG USE FOR UNKNOWN INDICATION
     Dosage: 30 MG; 60 MG
  3. COLCHICUM JTL LIQ [Suspect]
     Indication: DRUG USE FOR UNKNOWN INDICATION
     Dosage: 1.2 MG
  4. CYCLOSPORINE [Suspect]
     Indication: DRUG USE FOR UNKNOWN INDICATION
  5. METHYLPREDNISOLONE [Suspect]
     Indication: POLYMYOSITIS
     Dosage: 500 MG (DAILY), INTRAVENOUS
     Route: 042
  6. PREDNISONE TAB [Suspect]
     Indication: DRUG USE FOR UNKNOWN INDICATION
     Dosage: 30 MG, ORAL; 7.5 MG, ORAL
     Route: 048
  7. MYCOPHENOLATE (MYCOPHENOLATE SODIUM) [Concomitant]
  8. INSULIN (INSULIN) [Concomitant]

REACTIONS (15)
  - BLOOD PRESSURE SYSTOLIC INCREASED [None]
  - BLOOD URIC ACID INCREASED [None]
  - DIASTOLIC DYSFUNCTION [None]
  - DRUG LEVEL INCREASED [None]
  - GOUTY TOPHUS [None]
  - HAEMODIALYSIS [None]
  - MITOCHONDRIAL TOXICITY [None]
  - MYOPATHY TOXIC [None]
  - OLIGURIA [None]
  - PNEUMONIA [None]
  - RESPIRATORY DISTRESS [None]
  - RHABDOMYOLYSIS [None]
  - SEPTIC SHOCK [None]
  - URINARY CASTS [None]
  - WEIGHT DECREASED [None]
